FAERS Safety Report 21313013 (Version 3)
Quarter: 2022Q3

REPORT INFORMATION
  Report Type: Report from Study
  Country: IT (occurrence: IT)
  Receive Date: 20220909
  Receipt Date: 20220928
  Transmission Date: 20221027
  Serious: Yes (Other)
  Sender: FDA-Public Use
  Company Number: IT-OTSUKA-2022_043763

PATIENT
  Age: 70 Year
  Sex: Female
  Weight: 65 kg

DRUGS (2)
  1. DECITABINE [Suspect]
     Active Substance: DECITABINE
     Indication: Acute myeloid leukaemia
     Dosage: 32.92 MG (20 MG/M2), FOR 5 CONSECUTIVE DAYS, CYCLE OF 28 DAYS (32.92 MG,1 IN 24 HR)
     Route: 042
     Dates: start: 20220711, end: 20220715
  2. VENETOCLAX [Suspect]
     Active Substance: VENETOCLAX
     Indication: Acute myeloid leukaemia
     Dosage: 400 MG/DIE (400 MG,1 IN 24 HR)
     Route: 048
     Dates: start: 20220711, end: 20220808

REACTIONS (10)
  - Submandibular abscess [Recovered/Resolved]
  - Gingival cyst [Recovering/Resolving]
  - Subcutaneous abscess [Recovered/Resolved]
  - Skin ulcer [Recovered/Resolved]
  - Gingival cyst [Recovering/Resolving]
  - Gingival cyst [Recovered/Resolved]
  - Tooth abscess [Recovered/Resolved]
  - Asthenia [Unknown]
  - Pyrexia [Recovered/Resolved]
  - Febrile neutropenia [Recovered/Resolved]

NARRATIVE: CASE EVENT DATE: 20220802
